FAERS Safety Report 23781583 (Version 9)
Quarter: 2024Q4

REPORT INFORMATION
  Report Type: Report from Study
  Country: US (occurrence: US)
  Receive Date: 20240425
  Receipt Date: 20241121
  Transmission Date: 20250114
  Serious: Yes (Hospitalization, Other)
  Sender: TAKEDA
  Company Number: US-TAKEDA-2024TUS009720

PATIENT
  Age: 38 Year
  Sex: Female
  Weight: 57 kg

DRUGS (29)
  1. HUMAN IMMUNOGLOBULIN G [Suspect]
     Active Substance: HUMAN IMMUNOGLOBULIN G
     Indication: Immune system disorder
     Dosage: 60 GRAM
  2. HUMAN IMMUNOGLOBULIN G [Suspect]
     Active Substance: HUMAN IMMUNOGLOBULIN G
     Dosage: 60 GRAM
  3. HUMAN IMMUNOGLOBULIN G [Suspect]
     Active Substance: HUMAN IMMUNOGLOBULIN G
     Dosage: 60 GRAM, Q4WEEKS
  4. EPINEPHRINE [Concomitant]
     Active Substance: EPINEPHRINE
     Dosage: UNK
  5. ACETAMINOPHEN [Concomitant]
     Active Substance: ACETAMINOPHEN
     Dosage: UNK
  6. SODIUM CHLORIDE [Concomitant]
     Active Substance: SODIUM CHLORIDE
     Dosage: UNK
  7. LACTULOSE [Concomitant]
     Active Substance: LACTULOSE
     Dosage: UNK
  8. MAGNESIUM OXIDE [Concomitant]
     Active Substance: MAGNESIUM OXIDE
     Dosage: UNK
  9. PANTOPRAZOLE SODIUM [Concomitant]
     Active Substance: PANTOPRAZOLE SODIUM
     Dosage: UNK
  10. ROBAXIN [Concomitant]
     Active Substance: METHOCARBAMOL
     Dosage: UNK
  11. POTASSIUM CHLORIDE [Concomitant]
     Active Substance: POTASSIUM CHLORIDE
     Dosage: UNK
  12. LIDOCAINE [Concomitant]
     Active Substance: LIDOCAINE
     Dosage: UNK
  13. HEPARIN SODIUM [Concomitant]
     Active Substance: HEPARIN SODIUM
     Dosage: UNK
  14. SUCRALFATE [Concomitant]
     Active Substance: SUCRALFATE
     Dosage: UNK
  15. THIAMINE HYDROCHLORIDE [Concomitant]
     Active Substance: THIAMINE HYDROCHLORIDE
     Dosage: UNK
  16. VITAMIN B [Concomitant]
     Active Substance: VITAMIN B
     Dosage: UNK
  17. BENTYL [Concomitant]
     Active Substance: DICYCLOMINE HYDROCHLORIDE
     Dosage: UNK
  18. DIPHENHYDRAMINE HYDROCHLORIDE [Concomitant]
     Active Substance: DIPHENHYDRAMINE HYDROCHLORIDE
     Dosage: UNK
  19. MELATONIN [Concomitant]
     Active Substance: MELATONIN
     Dosage: UNK
  20. FAMOTIDINE [Concomitant]
     Active Substance: FAMOTIDINE
     Dosage: UNK
  21. INDERAL LA [Concomitant]
     Active Substance: PROPRANOLOL HYDROCHLORIDE
     Dosage: UNK
  22. PROMETHAZINE HYDROCHLORIDE [Concomitant]
     Active Substance: PROMETHAZINE HYDROCHLORIDE
     Dosage: UNK
  23. BACLOFEN [Concomitant]
     Active Substance: BACLOFEN
     Dosage: UNK
  24. MELOXICAM [Concomitant]
     Active Substance: MELOXICAM
     Dosage: UNK
  25. SPIRONOLACTONE [Concomitant]
     Active Substance: SPIRONOLACTONE
     Dosage: UNK
  26. DIPHENHYDRAMINE [Concomitant]
     Active Substance: DIPHENHYDRAMINE
     Dosage: UNK
  27. LASIX [Concomitant]
     Active Substance: FUROSEMIDE
     Dosage: UNK
  28. MIRALAX [Concomitant]
     Active Substance: POLYETHYLENE GLYCOL 3350
     Dosage: UNK
  29. SUMATRIPTAN SUCCINATE [Concomitant]
     Active Substance: SUMATRIPTAN SUCCINATE
     Dosage: UNK

REACTIONS (34)
  - Fall [Unknown]
  - Blood potassium decreased [Unknown]
  - Grip strength decreased [Unknown]
  - Walking aid user [Not Recovered/Not Resolved]
  - Ascites [Unknown]
  - Fluid retention [Unknown]
  - Acute hepatic failure [Unknown]
  - Escherichia sepsis [Unknown]
  - Hepatic cirrhosis [Unknown]
  - Pallor [Unknown]
  - Thrombosis [Unknown]
  - Jaundice [Recovering/Resolving]
  - Asthenia [Not Recovered/Not Resolved]
  - Contusion [Unknown]
  - Abdominal pain upper [Unknown]
  - Abdominal pain [Unknown]
  - Fatigue [Not Recovered/Not Resolved]
  - Crying [Unknown]
  - Dermatitis contact [Unknown]
  - Ankle fracture [Unknown]
  - Dry skin [Unknown]
  - Urinary tract infection [Unknown]
  - Epistaxis [Unknown]
  - Pain [Not Recovered/Not Resolved]
  - Infusion site erythema [Unknown]
  - Swelling [Unknown]
  - Oedema peripheral [Unknown]
  - Dyspnoea [Unknown]
  - Tremor [Unknown]
  - Vomiting [Unknown]
  - Headache [Unknown]
  - Urticaria [Unknown]
  - Nausea [Recovered/Resolved]
  - Pruritus [Recovered/Resolved]

NARRATIVE: CASE EVENT DATE: 20240408
